FAERS Safety Report 23848659 (Version 3)
Quarter: 2024Q3

REPORT INFORMATION
  Report Type: Other
  Country: CA (occurrence: CA)
  Receive Date: 20240513
  Receipt Date: 20240927
  Transmission Date: 20241017
  Serious: Yes (Hospitalization, Other)
  Sender: APOTEX
  Company Number: CA-APOTEX-2022AP003192

PATIENT
  Age: 66 Year
  Sex: Female
  Weight: 105 kg

DRUGS (15)
  1. DEXAMETHASONE [Interacting]
     Active Substance: DEXAMETHASONE
     Indication: Immune thrombocytopenia
     Dosage: UNK
     Route: 065
  2. PREDNISONE [Interacting]
     Active Substance: PREDNISONE
     Indication: Immune thrombocytopenia
     Dosage: UNK
     Route: 065
  3. METHOTREXATE [Interacting]
     Active Substance: METHOTREXATE
     Indication: Rheumatoid arthritis
     Dosage: UNK
     Route: 065
  4. ELTROMBOPAG OLAMINE [Interacting]
     Active Substance: ELTROMBOPAG OLAMINE
     Indication: Immune thrombocytopenia
     Dosage: UNK (THERAPY DURATION OF 365 UNSPECIFIED UNIT)
     Route: 048
  5. ELTROMBOPAG OLAMINE [Interacting]
     Active Substance: ELTROMBOPAG OLAMINE
     Dosage: 25 MILLIGRAM
     Route: 048
  6. ELTROMBOPAG OLAMINE [Interacting]
     Active Substance: ELTROMBOPAG OLAMINE
     Dosage: 1 DOSAGE FORM
     Route: 048
  7. ELTROMBOPAG OLAMINE [Interacting]
     Active Substance: ELTROMBOPAG OLAMINE
     Dosage: 0.5 DOSAGE FORM, Q.O.WK.
     Route: 048
  8. ELTROMBOPAG OLAMINE [Interacting]
     Active Substance: ELTROMBOPAG OLAMINE
     Dosage: UNK
     Route: 048
  9. ELTROMBOPAG OLAMINE [Interacting]
     Active Substance: ELTROMBOPAG OLAMINE
     Dosage: 25 MILLIGRAM, Q.WK.
     Route: 048
  10. ELTROMBOPAG OLAMINE [Interacting]
     Active Substance: ELTROMBOPAG OLAMINE
     Dosage: 25 MILLIGRAM, QD
     Route: 048
  11. ELTROMBOPAG OLAMINE [Interacting]
     Active Substance: ELTROMBOPAG OLAMINE
     Dosage: 25 MILLIGRAM, QD
     Route: 048
  12. ELTROMBOPAG OLAMINE [Interacting]
     Active Substance: ELTROMBOPAG OLAMINE
     Dosage: UNK
     Route: 048
  13. ELTROMBOPAG OLAMINE [Interacting]
     Active Substance: ELTROMBOPAG OLAMINE
     Dosage: 0.5 DOSAGE FORM,CYCLICAL
     Route: 048
  14. ELTROMBOPAG OLAMINE [Interacting]
     Active Substance: ELTROMBOPAG OLAMINE
     Dosage: 0.5 DOSAGE FORM, Q.O.WK.
     Route: 048
  15. RITUXIMAB [Interacting]
     Active Substance: RITUXIMAB
     Indication: Immune thrombocytopenia
     Dosage: 375 MILLIGRAM/SQ. METER
     Route: 065

REACTIONS (19)
  - COVID-19 [Recovering/Resolving]
  - Drug interaction [Recovering/Resolving]
  - Platelet count increased [Recovering/Resolving]
  - Product prescribing error [Recovering/Resolving]
  - Product use in unapproved indication [Recovering/Resolving]
  - Wrong technique in product usage process [Recovering/Resolving]
  - Mouth haemorrhage [Recovering/Resolving]
  - Influenza [Recovering/Resolving]
  - Off label use [Recovering/Resolving]
  - SARS-CoV-2 test positive [Recovering/Resolving]
  - Arthralgia [Recovering/Resolving]
  - Fall [Recovering/Resolving]
  - Fatigue [Recovering/Resolving]
  - Haemorrhage [Recovering/Resolving]
  - Head banging [Recovering/Resolving]
  - Joint injury [Recovering/Resolving]
  - Swelling face [Recovering/Resolving]
  - Platelet count decreased [Recovering/Resolving]
  - Drug ineffective [Recovering/Resolving]
